FAERS Safety Report 6005525-3 (Version None)
Quarter: 2008Q4

REPORT INFORMATION
  Report Type: 
  Country: None (occurrence: None)
  Receive Date: 20081216
  Receipt Date: 20081216
  Transmission Date: 20090506
  Serious: Yes (Hospitalization)
  Sender: FDA-Public Use
  Company Number: None

PATIENT
  Age: 71 Year
  Sex: Female

DRUGS (14)
  1. GLIPIZIDE [Suspect]
     Indication: DIABETES MELLITUS
     Dosage: 10 MG DAILY PO
     Route: 048
  2. ZOCOR [Concomitant]
  3. FOSAMAX [Concomitant]
  4. ALBUTEROL [Concomitant]
  5. ADVAIR DISKUS 250/50 [Concomitant]
  6. DUONEB [Concomitant]
  7. DIGOXIN [Concomitant]
  8. PREDNISONE [Concomitant]
  9. PAXIL [Concomitant]
  10. SINGULAIR [Concomitant]
  11. NEXIUM [Concomitant]
  12. POTASSIUM CHLORIDE [Concomitant]
  13. CELEBREX [Concomitant]
  14. ACTOS [Concomitant]

REACTIONS (1)
  - HYPOGLYCAEMIA [None]
